FAERS Safety Report 6551933-1 (Version None)
Quarter: 2010Q1

REPORT INFORMATION
  Report Type: 
  Country: None (occurrence: None)
  Receive Date: 20100126
  Receipt Date: 20100118
  Transmission Date: 20100710
  Serious: Yes (Hospitalization)
  Sender: FDA-Public Use
  Company Number: FR-ASTRAZENECA-2010SE02552

PATIENT
  Age: 21677 Day
  Sex: Female

DRUGS (7)
  1. CRESTOR [Suspect]
     Route: 048
     Dates: start: 20090101, end: 20090515
  2. FURADANTIN [Suspect]
     Indication: URINARY TRACT INFECTION
     Route: 048
     Dates: start: 20060101, end: 20090515
  3. IBUPROFEN [Suspect]
     Indication: ARTHRALGIA
     Dosage: AS REQUIRED (REGULAR INTAKES ESTIMATED AT 15 DAYS PER MONTH)
     Route: 048
     Dates: end: 20091015
  4. DOLIPRANE [Suspect]
     Indication: ARTHRALGIA
     Dosage: AS REQUIRED (REGULAR INTAKES ESTIMATED AT 15 DAYS PER MONTH)
     Route: 048
     Dates: end: 20091015
  5. SEROPLEX [Suspect]
     Route: 048
     Dates: start: 20090101, end: 20090515
  6. PROPOFAN [Concomitant]
  7. CORTICOSTEROIDS [Concomitant]
     Indication: PULMONARY SARCOIDOSIS

REACTIONS (2)
  - CYTOLYTIC HEPATITIS [None]
  - HEPATIC FIBROSIS [None]
